FAERS Safety Report 8340100-7 (Version None)
Quarter: 2012Q2

REPORT INFORMATION
  Report Type: 
  Country: None (occurrence: None)
  Receive Date: 20120507
  Receipt Date: 20120423
  Transmission Date: 20120825
  Serious: Yes (Other)
  Sender: FDA-Public Use
  Company Number: ZA-NOVOPROD-339737

PATIENT
  Age: 42 Year
  Sex: Female
  Weight: 91 kg

DRUGS (3)
  1. GLYCOMIN                           /00082702/ [Concomitant]
     Dosage: 5 MG, BID
     Route: 048
     Dates: start: 20000507
  2. LEVEMIR [Suspect]
     Indication: GESTATIONAL DIABETES
     Dosage: 8 U, QD
     Route: 058
     Dates: start: 20111114
  3. GLUCOPHAGE [Concomitant]
     Dosage: 850 MG, BID
     Route: 048
     Dates: start: 20000507

REACTIONS (2)
  - STILLBIRTH [None]
  - MATERNAL EXPOSURE DURING PREGNANCY [None]
